FAERS Safety Report 7086501-9 (Version None)
Quarter: 2010Q4

REPORT INFORMATION
  Report Type: 
  Country: None (occurrence: None)
  Receive Date: 20101105
  Receipt Date: 20101101
  Transmission Date: 20110411
  Serious: Yes (Death)
  Sender: FDA-Public Use
  Company Number: US-CELGENEUS-163-20785-10081816

PATIENT
  Sex: Female
  Weight: 74.456 kg

DRUGS (23)
  1. THALOMID [Suspect]
     Indication: MULTIPLE MYELOMA
     Dosage: 200MG-400MG
     Route: 048
     Dates: start: 20030101, end: 20030401
  2. THALOMID [Suspect]
     Route: 048
     Dates: start: 20030501, end: 20051101
  3. DEXAMETHASONE [Concomitant]
     Indication: MULTIPLE MYELOMA
     Route: 065
     Dates: end: 20060817
  4. ZOMETA [Concomitant]
     Route: 065
     Dates: end: 20060809
  5. OXYCONTIN [Concomitant]
     Dosage: 40MG OR 80MG
     Route: 065
  6. OXYCODONE [Concomitant]
     Indication: BACK PAIN
     Route: 048
  7. WARFARIN SODIUM [Concomitant]
     Route: 065
  8. METOPROLOL [Concomitant]
     Route: 065
  9. ENABLEX [Concomitant]
     Route: 065
  10. LEVOTHYROXINE [Concomitant]
     Route: 065
  11. FAMOTIDINE [Concomitant]
     Route: 065
  12. PYRIDOXINE HCL [Concomitant]
     Route: 065
  13. DOCUSATE [Concomitant]
     Dosage: 2-3 TABLETS
     Route: 048
  14. NOVOLOG [Concomitant]
     Dosage: 16 UNITS Q AM, 10 UNITS Q PM
     Route: 065
  15. POTASSIUM CHLORIDE [Concomitant]
     Route: 065
  16. COUMADIN [Concomitant]
     Route: 065
  17. TOPROL-XL [Concomitant]
     Route: 065
  18. LASIX [Concomitant]
     Route: 065
  19. MULTI-VITAMINS [Concomitant]
     Route: 065
  20. VITAMIN B6 [Concomitant]
     Route: 065
  21. COLACE [Concomitant]
     Route: 065
  22. DETROL [Concomitant]
     Route: 065
  23. PEPCID [Concomitant]
     Route: 065

REACTIONS (1)
  - SMALL CELL LUNG CANCER STAGE UNSPECIFIED [None]
